FAERS Safety Report 12363387 (Version 1)
Quarter: 2016Q2

REPORT INFORMATION
  Report Type: Spontaneous
  Country: US (occurrence: None)
  Receive Date: 20160512
  Receipt Date: 20160512
  Transmission Date: 20160815
  Serious: No
  Sender: FDA-Public Use
  Company Number: None

PATIENT
  Age: 37 Year
  Sex: Male

DRUGS (1)
  1. TRIUMEQ [Suspect]
     Active Substance: ABACAVIR SULFATE\DOLUTEGRAVIR SODIUM\LAMIVUDINE
     Indication: ASYMPTOMATIC HIV INFECTION
     Dosage: 600/50/300MG ONCE DAILY BY MOUTH
     Route: 048
     Dates: start: 20160217

REACTIONS (2)
  - Anal incontinence [None]
  - Abnormal faeces [None]

NARRATIVE: CASE EVENT DATE: 20160510
